FAERS Safety Report 6120955-7 (Version None)
Quarter: 2009Q1

REPORT INFORMATION
  Report Type: 
  Country: None (occurrence: None)
  Receive Date: 20090312
  Receipt Date: 20090312
  Transmission Date: 20090719
  Serious: Yes (Life-Threatening, Hospitalization)
  Sender: FDA-Public Use
  Company Number: None

PATIENT
  Age: 48 Year
  Sex: Female
  Weight: 76.2043 kg

DRUGS (2)
  1. MAXALT-MLT [Suspect]
     Indication: MIGRAINE
     Dosage: 1 TABLET NO MORE THAN 2 @ 24 HR PO @ ONSET OF MIGRAINE
     Route: 048
     Dates: start: 20090227, end: 20090227
  2. MAXALT-MLT [Suspect]
     Indication: MIGRAINE
     Dosage: 1 TABLET NO MORE THAN 2 @ 24 HR PO @ ONSET OF MIGRAINE
     Route: 048
     Dates: start: 20090228, end: 20090228

REACTIONS (3)
  - ARTERIOSPASM CORONARY [None]
  - CARDIOVASCULAR DISORDER [None]
  - MYOCARDIAL INFARCTION [None]
